FAERS Safety Report 23618747 (Version 1)
Quarter: 2024Q1

REPORT INFORMATION
  Report Type: Spontaneous
  Country: US (occurrence: US)
  Receive Date: 20240311
  Receipt Date: 20240311
  Transmission Date: 20240410
  Serious: No
  Sender: FDA-Public Use
  Company Number: US-BRISTOL-MYERS SQUIBB COMPANY-2024-038434

PATIENT
  Age: 72 Year
  Sex: Female
  Weight: 58.97 kg

DRUGS (1)
  1. REVLIMID [Suspect]
     Active Substance: LENALIDOMIDE
     Indication: Chronic kidney disease
     Dosage: FRQUENCY-DAILY
     Route: 048
     Dates: start: 20240201

REACTIONS (5)
  - Lacrimation increased [Unknown]
  - Insomnia [Unknown]
  - Constipation [Unknown]
  - Pruritus [Unknown]
  - Off label use [Unknown]
